FAERS Safety Report 9316647 (Version 1)
Quarter: 2013Q2

REPORT INFORMATION
  Report Type: Spontaneous
  Country: US (occurrence: None)
  Receive Date: 20130524
  Receipt Date: 20130524
  Transmission Date: 20140414
  Serious: Yes (Other)
  Sender: FDA-Public Use
  Company Number: AUR-APL-2013-04095

PATIENT
  Age: 44 Year
  Sex: Female

DRUGS (3)
  1. VALPROATE [Suspect]
     Indication: AFFECT LABILITY
     Dosage: 500MG 1D
  2. CARBIDOPA AND LEVODOPA [Suspect]
     Indication: PRODUCT USED FOR UNKNOWN INDICATION
     Dosage: 25/100 UP TO 6 TABLETS/DAY UNKNOWN
  3. PRAMIPEXOLE [Suspect]
     Indication: PRODUCT USED FOR UNKNOWN INDICATION

REACTIONS (2)
  - Parkinsonism [None]
  - Muscle spasms [None]
